FAERS Safety Report 5913702-2 (Version None)
Quarter: 2008Q3

REPORT INFORMATION
  Report Type: 
  Country: None (occurrence: None)
  Receive Date: 20080909
  Receipt Date: 20070820
  Transmission Date: 20090109
  Serious: Yes (Death)
  Sender: FDA-Public Use
  Company Number: 163-20785-07081320 (0)

PATIENT
  Age: 35 Year
  Sex: Male

DRUGS (2)
  1. THALOMID [Suspect]
     Indication: MULTIPLE MYELOMA
     Dosage: 150-200MG, DAILY, ORAL ; 800 MG, 4 IN 1 D, ORAL
     Route: 048
     Dates: start: 20060401, end: 20070201
  2. THALOMID [Suspect]
     Indication: MULTIPLE MYELOMA
     Dosage: 150-200MG, DAILY, ORAL ; 800 MG, 4 IN 1 D, ORAL
     Route: 048
     Dates: start: 20070701

REACTIONS (1)
  - DISEASE PROGRESSION [None]
